FAERS Safety Report 10463854 (Version 2)
Quarter: 2014Q4

REPORT INFORMATION
  Report Type: Spontaneous
  Country: US (occurrence: US)
  Receive Date: 20140919
  Receipt Date: 20141013
  Transmission Date: 20150528
  Serious: Yes (Other)
  Sender: FDA-Public Use
  Company Number: US-PFIZER INC-2014254459

PATIENT
  Age: 65 Year
  Sex: Female
  Weight: 53.61 kg

DRUGS (13)
  1. COUMADINE [Concomitant]
     Active Substance: WARFARIN SODIUM
     Indication: HYPERCOAGULATION
     Dosage: 10 MG, 1X/DAY
  2. VITAMIN B COMPLEX [Concomitant]
     Active Substance: CYANOCOBALAMIN\DEXPANTHENOL\NIACINAMIDE\PYRIDOXINE HYDROCHLORIDE\RIBOFLAVIN 5^-PHOSPHATE SODIUM\THIAMINE HYDROCHLORIDE\VITAMIN B COMPLEX
     Dosage: UNK
  3. PRILOSEC [Concomitant]
     Active Substance: OMEPRAZOLE MAGNESIUM
     Dosage: 20 MG, 1X/DAY
  4. REVATIO [Suspect]
     Active Substance: SILDENAFIL CITRATE
     Indication: PULMONARY ARTERIAL HYPERTENSION
     Dosage: 20 MG, 3X/DAY
  5. CARDIZEM [Suspect]
     Active Substance: DILTIAZEM HYDROCHLORIDE
     Indication: PULMONARY ARTERIAL HYPERTENSION
     Dosage: 240 MG, 1X/DAY
  6. SYMBICORT [Concomitant]
     Active Substance: BUDESONIDE\FORMOTEROL FUMARATE DIHYDRATE
     Indication: ASTHMA
  7. TOPAMAX [Concomitant]
     Active Substance: TOPIRAMATE
     Dosage: 50 MG, UNK (1QHS, 2 QAM)
  8. LABETALOL HYDROCHLORIDE. [Concomitant]
     Active Substance: LABETALOL HYDROCHLORIDE
     Dosage: 200 MG, 2X/DAY
  9. VENTOLIN [Concomitant]
     Active Substance: ALBUTEROL SULFATE
     Dosage: 108 UG, EVERY 4 HRS (PRN)
  10. ALBUTEROL. [Concomitant]
     Active Substance: ALBUTEROL
     Indication: DYSPNOEA
     Dosage: UNK
  11. SYMBICORT [Concomitant]
     Active Substance: BUDESONIDE\FORMOTEROL FUMARATE DIHYDRATE
     Indication: DYSPNOEA
     Dosage: 160 UG, 2X/DAY (2 PUFFS)
  12. SIMVASTATIN. [Concomitant]
     Active Substance: SIMVASTATIN
     Dosage: 10 MG, 1X/DAY
  13. AMBIEN [Concomitant]
     Active Substance: ZOLPIDEM TARTRATE
     Dosage: 10 MG, 1X/DAY

REACTIONS (21)
  - Chest pain [Unknown]
  - Dyspnoea [Unknown]
  - Increased tendency to bruise [Unknown]
  - Anaemia [Unknown]
  - Headache [Unknown]
  - Sleep disorder [Unknown]
  - Constipation [Unknown]
  - Dyspnoea exertional [Unknown]
  - Dizziness [Unknown]
  - Arrhythmia [Unknown]
  - Fatigue [Unknown]
  - Hypertension [Unknown]
  - Haemorrhagic diathesis [Unknown]
  - Chest discomfort [Unknown]
  - Muscular weakness [Unknown]
  - Cough [Unknown]
  - Vitamin B12 deficiency [Unknown]
  - Productive cough [Unknown]
  - Cardiac murmur [Unknown]
  - Insomnia [Unknown]
  - Gastrooesophageal reflux disease [Unknown]
